FAERS Safety Report 25451188 (Version 2)
Quarter: 2025Q2

REPORT INFORMATION
  Report Type: Spontaneous
  Country: GB (occurrence: GB)
  Receive Date: 20250618
  Receipt Date: 20250620
  Transmission Date: 20250717
  Serious: Yes (Life-Threatening, Hospitalization)
  Sender: MYLAN
  Company Number: GB-MYLANLABS-2025M1050697

PATIENT
  Age: 34 Year
  Sex: Male

DRUGS (16)
  1. CLOZAPINE [Suspect]
     Active Substance: CLOZAPINE
     Indication: Schizophrenia
  2. CLOZAPINE [Suspect]
     Active Substance: CLOZAPINE
  3. CLOZAPINE [Suspect]
     Active Substance: CLOZAPINE
  4. CLOZAPINE [Suspect]
     Active Substance: CLOZAPINE
  5. RISPERIDONE [Suspect]
     Active Substance: RISPERIDONE
     Indication: Schizophrenia
  6. AMISULPRIDE [Suspect]
     Active Substance: AMISULPRIDE
     Indication: Schizophrenia
  7. AMISULPRIDE [Suspect]
     Active Substance: AMISULPRIDE
     Dosage: 1000 MILLIGRAM, QD (HIGH DOSE)
     Dates: start: 2023
  8. OLANZAPINE [Suspect]
     Active Substance: OLANZAPINE
     Indication: Schizophrenia
  9. OLANZAPINE [Suspect]
     Active Substance: OLANZAPINE
     Dosage: 50 MILLIGRAM, QD (HIGH DOSE)
     Dates: start: 2023
  10. OLANZAPINE [Suspect]
     Active Substance: OLANZAPINE
     Dosage: 20 MILLIGRAM, QD
     Dates: start: 2023
  11. HALOPERIDOL [Suspect]
     Active Substance: HALOPERIDOL
     Indication: Schizophrenia
  12. LITHIUM [Suspect]
     Active Substance: LITHIUM
     Indication: Schizophrenia
  13. LITHIUM [Suspect]
     Active Substance: LITHIUM
     Indication: Aggression
     Dosage: 400 MILLIGRAM, QD
     Dates: start: 202212
  14. LITHIUM [Suspect]
     Active Substance: LITHIUM
     Dosage: 800 MILLIGRAM, QD
     Dates: start: 2023
  15. LURASIDONE [Suspect]
     Active Substance: LURASIDONE
     Indication: Schizophrenia
  16. LENOGRASTIM [Suspect]
     Active Substance: LENOGRASTIM
     Indication: Neutropenia

REACTIONS (5)
  - Agranulocytosis [Recovered/Resolved]
  - Neutropenia [Recovered/Resolved]
  - Rebound effect [Recovering/Resolving]
  - Schizophrenia [Recovering/Resolving]
  - Drug ineffective [Unknown]

NARRATIVE: CASE EVENT DATE: 20220201
